FAERS Safety Report 5655135-2 (Version None)
Quarter: 2008Q1

REPORT INFORMATION
  Report Type: 
  Country: None (occurrence: None)
  Receive Date: 20080307
  Receipt Date: 20080123
  Transmission Date: 20080703
  Serious: No
  Sender: FDA-Public Use
  Company Number: A0702791A

PATIENT
  Age: 73 Year
  Sex: Female
  Weight: 95 kg

DRUGS (4)
  1. REQUIP [Suspect]
     Indication: RESTLESS LEGS SYNDROME
     Route: 048
     Dates: start: 20071011, end: 20071230
  2. LOTREL [Concomitant]
     Route: 048
  3. TRAMADOL HCL [Concomitant]
     Dosage: 25MG UNKNOWN
     Route: 048
  4. ENTERIC ASPIRIN [Concomitant]
     Route: 048

REACTIONS (7)
  - DIARRHOEA [None]
  - EARLY MORNING AWAKENING [None]
  - GASTRIC DISORDER [None]
  - INSOMNIA [None]
  - MALAISE [None]
  - NAUSEA [None]
  - VOMITING [None]
